FAERS Safety Report 16950231 (Version 1)
Quarter: 2019Q4

REPORT INFORMATION
  Report Type: Spontaneous
  Country: US (occurrence: US)
  Receive Date: 20191023
  Receipt Date: 20191023
  Transmission Date: 20200122
  Serious: No
  Sender: FDA-Public Use
  Company Number: US-PFIZER INC-2019452707

PATIENT
  Age: 62 Year
  Sex: Female

DRUGS (3)
  1. LYRICA [Suspect]
     Active Substance: PREGABALIN
     Dosage: 1 DF, 2X/DAY (1 PILL TWICE A DAY)
  2. LYRICA [Suspect]
     Active Substance: PREGABALIN
     Dosage: 2 DF, DAILY (2 TABLETS A DAY)
  3. LYRICA [Suspect]
     Active Substance: PREGABALIN
     Dosage: 2 DF, 2X/DAY (2 PILL TWICE A DAY)

REACTIONS (2)
  - Intercepted product prescribing error [Unknown]
  - Drug ineffective [Unknown]
